FAERS Safety Report 10229264 (Version 1)
Quarter: 2014Q2

REPORT INFORMATION
  Report Type: Spontaneous
  Country: US (occurrence: US)
  Receive Date: 20140611
  Receipt Date: 20140611
  Transmission Date: 20141212
  Serious: No
  Sender: FDA-Public Use
  Company Number: US-BIOGENIDEC-2014BI054441

PATIENT
  Age: 53 Year
  Sex: 0
  Weight: 65 kg

DRUGS (1)
  1. AVONEX [Suspect]
     Indication: MULTIPLE SCLEROSIS
     Route: 030
     Dates: start: 20130510

REACTIONS (3)
  - Weight increased [Not Recovered/Not Resolved]
  - Choking [Not Recovered/Not Resolved]
  - Musculoskeletal stiffness [Unknown]
